FAERS Safety Report 6844898-6 (Version None)
Quarter: 2010Q3

REPORT INFORMATION
  Report Type: 
  Country: None (occurrence: None)
  Receive Date: 20100713
  Receipt Date: 20100628
  Transmission Date: 20110219
  Serious: Yes (Hospitalization)
  Sender: FDA-Public Use
  Company Number: A-US2010-37201

PATIENT
  Age: 45 Year
  Sex: Female

DRUGS (1)
  1. TRACLEER [Suspect]
     Indication: PULMONARY ARTERIAL HYPERTENSION
     Dosage: UNK, ORAL
     Route: 048
     Dates: start: 20070511

REACTIONS (12)
  - DEHYDRATION [None]
  - DIARRHOEA [None]
  - DISEASE PROGRESSION [None]
  - GASTROENTERITIS [None]
  - GLUCOSE TOLERANCE IMPAIRED [None]
  - HEPATOMEGALY [None]
  - HYPERTENSION [None]
  - HYPOKALAEMIA [None]
  - OVARIAN CYST [None]
  - PULMONARY ARTERIAL HYPERTENSION [None]
  - SLEEP APNOEA SYNDROME [None]
  - VOMITING [None]
